FAERS Safety Report 15230032 (Version 1)
Quarter: 2018Q3

REPORT INFORMATION
  Report Type: Spontaneous
  Country: US (occurrence: US)
  Receive Date: 20180802
  Receipt Date: 20180802
  Transmission Date: 20181010
  Serious: Yes (Other)
  Sender: FDA-Public Use
  Company Number: US-ACCORD-062738

PATIENT
  Age: 39 Year
  Sex: Female
  Weight: 61.23 kg

DRUGS (19)
  1. HERCEPTIN [Suspect]
     Active Substance: TRASTUZUMAB
     Indication: BREAST CANCER STAGE II
     Dosage: 480 MG IN SODIUM CHLORIDE 0.9% 250 ML CHEMO INFUSION
     Route: 042
     Dates: start: 20151020, end: 20160930
  2. CLARITIN [Concomitant]
     Active Substance: LORATADINE
     Route: 048
  3. PARAPLATIN [Suspect]
     Active Substance: CARBOPLATIN
     Indication: BREAST CANCER STAGE II
     Dosage: 690 MG IN SODIUM CHLORIDE 0.9% 250 ML CHEMO INFUSION
     Route: 042
     Dates: start: 20151020, end: 20160201
  4. IMODIUM [Concomitant]
     Active Substance: LOPERAMIDE HYDROCHLORIDE
     Indication: DIARRHOEA
     Dosage: STRENGTH: 1 MG/5 ML?TAKE BY MOUTH 4 TIMES DAILY AS NEEDED
     Route: 048
  5. KLOR?CON [Concomitant]
     Active Substance: POTASSIUM CHLORIDE
     Dosage: STRENGTH: 10 MEQ?TAKE 2 TABLETS (20 MEQ TOTAL) BY MOUTH 2 TIMES DAILY
     Route: 048
  6. METROGEL [Concomitant]
     Active Substance: METRONIDAZOLE
     Dosage: STRENGTH: 0.75%
  7. PERJETA [Suspect]
     Active Substance: PERTUZUMAB
     Indication: BREAST CANCER STAGE II
     Dosage: 840 MG IN SODIUM CHLORIDE 0.9% 250 ML CHEMO INFUSION
     Route: 042
     Dates: start: 20151020, end: 20160201
  8. ZOFRAN?ODT [Concomitant]
     Indication: NAUSEA
     Dosage: STRENGTH: 8 MG?TAKE 1 TABLET (8 MG TOTAL) BY MOUTH EVERY 8 HOURS AS NEEDED
     Route: 048
  9. COMPAZINE [Concomitant]
     Active Substance: PROCHLORPERAZINE MALEATE
     Indication: NAUSEA
     Dosage: STRENGTH: 10 MG ?TAKE 1 TABLET (10 MG TOTAL) BY MOUTH EVERY 6 HOURS AS NEEDED
     Route: 048
  10. TYLENOL [Concomitant]
     Active Substance: ACETAMINOPHEN
     Dosage: STRENGTH: 500 MG?TAKE 1000 MG BY MOUTH EVERY 6 HOURS AS NEEDED
     Route: 048
  11. DOCETAXEL ACCORD [Suspect]
     Active Substance: DOCETAXEL
     Indication: BREAST CANCER STAGE II
     Dosage: 128 MG IN SODIUM CHLORIDE 0.9% 250 ML CHEMO INFUSION
     Route: 042
     Dates: start: 20151020, end: 20160201
  12. ALOXI [Concomitant]
     Active Substance: PALONOSETRON HYDROCHLORIDE
  13. SODIUM CHLORIDE. [Concomitant]
     Active Substance: SODIUM CHLORIDE
     Dosage: STRENGTH: 0.9%
  14. EMEND [Concomitant]
     Active Substance: APREPITANT
     Dosage: 150 MG IN SODIUM CHLORIDE 0.9% 250 ML IVPB
     Route: 042
  15. ROXICODONE [Concomitant]
     Active Substance: OXYCODONE HYDROCHLORIDE
     Dosage: STRENGTH: 5 MG IMMEDIATE RELEASE TABLET?TAKE 5 MG BY MOUTH EVERY 4 HOURS AS NEEDED
     Route: 048
  16. EMLA [Concomitant]
     Active Substance: LIDOCAINE\PRILOCAINE
     Dosage: TOPICALLY AS NEEDED
     Route: 061
  17. DECADRON [Concomitant]
     Active Substance: DEXAMETHASONE
     Dosage: STRENGTH: 10 MG/ML?ALSO RECEIVED DECADRON TABLET 12 MG
  18. DIFLUCAN [Concomitant]
     Active Substance: FLUCONAZOLE
     Dosage: STRENGTH: 100 MG?TAKE ONE TABLET DAILY FOR 7 DAYS STARTING 2 DAYS AFTER EACH CHEMOTHERAPY SESSION
  19. CLEOCIN [Concomitant]
     Active Substance: CLINDAMYCIN PHOSPHATE
     Dosage: STRENGTH: 2% VAGINAL CREAM

REACTIONS (1)
  - Alopecia [Not Recovered/Not Resolved]

NARRATIVE: CASE EVENT DATE: 20160801
